FAERS Safety Report 25630072 (Version 1)
Quarter: 2025Q3

REPORT INFORMATION
  Report Type: Spontaneous
  Country: US (occurrence: US)
  Receive Date: 20250801
  Receipt Date: 20250801
  Transmission Date: 20251020
  Serious: No
  Sender: GLENMARK
  Company Number: US-GLENMARK PHARMACEUTICALS-2025GMK097131

PATIENT

DRUGS (1)
  1. NYSTATIN\TRIAMCINOLONE ACETONIDE [Suspect]
     Active Substance: NYSTATIN\TRIAMCINOLONE ACETONIDE
     Indication: Ill-defined disorder
     Dosage: UNK UNK, QD (APPLYING IT AT NIGHT.)
     Route: 065

REACTIONS (2)
  - Expired product administered [Unknown]
  - Treatment noncompliance [Unknown]
